FAERS Safety Report 12975995 (Version 1)
Quarter: 2016Q4

REPORT INFORMATION
  Report Type: Spontaneous
  Country: BR (occurrence: BR)
  Receive Date: 20161126
  Receipt Date: 20161126
  Transmission Date: 20170207
  Serious: Yes (Hospitalization, Other)
  Sender: FDA-Public Use
  Company Number: BR-ASTRAZENECA-2016SF24186

PATIENT
  Sex: Male

DRUGS (2)
  1. XIGDUO XR [Suspect]
     Active Substance: DAPAGLIFLOZIN PROPANEDIOL\METFORMIN HYDROCHLORIDE
     Indication: HYPERINSULINAEMIA
     Route: 048
  2. XIGDUO XR [Suspect]
     Active Substance: DAPAGLIFLOZIN PROPANEDIOL\METFORMIN HYDROCHLORIDE
     Indication: METABOLIC SYNDROME
     Route: 048

REACTIONS (4)
  - Off label use [Recovered/Resolved]
  - Product use issue [Recovered/Resolved]
  - Hypersensitivity [Recovered/Resolved]
  - Dermatitis [Recovered/Resolved]
